FAERS Safety Report 6114280-8 (Version None)
Quarter: 2009Q1

REPORT INFORMATION
  Report Type: 
  Country: None (occurrence: None)
  Receive Date: 20090312
  Receipt Date: 20081111
  Transmission Date: 20090719
  Serious: No
  Sender: FDA-Public Use
  Company Number: US-ABBOTT-08P-163-0487924-00

PATIENT

DRUGS (2)
  1. DEPAKOTE [Suspect]
     Indication: DRUG USE FOR UNKNOWN INDICATION
     Dosage: UNKNOWN
  2. DEPACON [Suspect]
     Indication: CONVULSION
     Dosage: UNKNOWN
     Route: 042

REACTIONS (2)
  - AMMONIA INCREASED [None]
  - CONVULSION [None]
